FAERS Safety Report 5526223-6 (Version None)
Quarter: 2007Q4

REPORT INFORMATION
  Report Type: 
  Country: None (occurrence: None)
  Receive Date: 20071127
  Receipt Date: 20071125
  Transmission Date: 20080405
  Serious: Yes (Other)
  Sender: FDA-Public Use
  Company Number: PHHO2007IL18914

PATIENT
  Age: 23 Year
  Sex: Female
  Weight: 40.6 kg

DRUGS (1)
  1. PEGASYS [Suspect]
     Indication: HEPATITIS B
     Dosage: 600 MG,
     Route: 048
     Dates: start: 20070710, end: 20071114

REACTIONS (3)
  - DYSAESTHESIA [None]
  - PARAESTHESIA [None]
  - PERIPHERAL SENSORY NEUROPATHY [None]
